FAERS Safety Report 18971712 (Version 2)
Quarter: 2025Q3

REPORT INFORMATION
  Report Type: Spontaneous
  Country: EU (occurrence: EU)
  Receive Date: 20210304
  Receipt Date: 20250731
  Transmission Date: 20251020
  Serious: Yes (Hospitalization)
  Sender: AUROBINDO
  Company Number: EU-PFIZER INC-2021135749

PATIENT
  Age: 70 Year
  Sex: Male

DRUGS (2)
  1. CLOZAPINE [Suspect]
     Active Substance: CLOZAPINE
     Indication: Product used for unknown indication
     Dosage: 25 MILLIGRAM, ONCE A DAY, DAILY (FOR 3 YEARS)
     Route: 065
  2. CITALOPRAM [Concomitant]
     Active Substance: CITALOPRAM
     Indication: Affective disorder
     Dosage: 20 MILLIGRAM, ONCE A DAY, DAILY
     Route: 065

REACTIONS (3)
  - Myoglobin blood increased [Unknown]
  - Myopathy [Recovering/Resolving]
  - Blood creatine phosphokinase increased [Recovered/Resolved]
